FAERS Safety Report 6122114-0 (Version None)
Quarter: 2009Q1

REPORT INFORMATION
  Report Type: 
  Country: None (occurrence: None)
  Receive Date: 20090318
  Receipt Date: 20090305
  Transmission Date: 20090719
  Serious: Yes (Hospitalization)
  Sender: FDA-Public Use
  Company Number: GB-RANBAXY-2009RR-22225

PATIENT
  Age: 43 Year
  Sex: Female
  Weight: 163.5 kg

DRUGS (23)
  1. IRBESARTAN [Suspect]
     Dosage: 150 MG, UNK
     Route: 048
     Dates: end: 20081013
  2. LISINOPRIL [Suspect]
     Dosage: 50 MG, UNK
     Route: 048
     Dates: end: 20081013
  3. SPIRONOLACTONE [Concomitant]
     Dosage: UNK MG, UNK
     Dates: end: 20081013
  4. ACOMPLIA [Suspect]
     Indication: OBESITY
     Dosage: 20 MG, UNK
     Route: 048
     Dates: start: 20070626, end: 20081013
  5. ASPIRIN [Concomitant]
     Indication: CARDIOVASCULAR EVENT PROPHYLAXIS
     Dosage: 75 MG, UNK
     Route: 048
  6. ATENOLOL [Concomitant]
     Dosage: 50 MG, UNK
     Route: 048
  7. ATORVASTATIN [Concomitant]
     Dosage: 80 MG, UNK
     Route: 048
  8. CODEINE [Concomitant]
     Dosage: 120 MG, UNK
     Route: 048
  9. FUROSEMIDE [Concomitant]
     Dosage: 40 MG, UNK
     Route: 048
  10. GLYCERYL TRINITATE [Concomitant]
     Dosage: 400 UG, UNK
     Route: 060
  11. ISOSORBIDE MONONITRATE [Concomitant]
     Dosage: 90 MG, UNK
     Route: 048
  12. ISPAGHULA HUSK [Concomitant]
     Dosage: 2 DF, UNK
     Route: 048
  13. LIDOCAINE [Concomitant]
     Dosage: UNK
     Route: 061
  14. NITRAZEPAM [Concomitant]
     Dosage: 5 MG, UNK
     Route: 048
  15. OMACOR [Concomitant]
     Dosage: UNK
     Route: 048
  16. OMEPRAZOLE [Concomitant]
     Dosage: 20 MG, UNK
     Route: 048
  17. PARACETAMOL [Concomitant]
     Dosage: 4 G, UNK
     Route: 048
  18. QUININE SULFATE [Concomitant]
     Dosage: 300 MG, UNK
     Route: 048
  19. TRIMETHOPRIM [Concomitant]
     Dosage: 100 MG, UNK
     Route: 048
  20. VESICARE [Concomitant]
  21. BISOPROLOL [Concomitant]
  22. DILTIAZEM [Concomitant]
  23. SOLIFENACIN [Concomitant]

REACTIONS (15)
  - ATRIAL FIBRILLATION [None]
  - BACK PAIN [None]
  - DEHYDRATION [None]
  - DYSPEPSIA [None]
  - FEAR OF EATING [None]
  - GASTROOESOPHAGEAL REFLUX DISEASE [None]
  - HYPERTENSION [None]
  - NAUSEA [None]
  - OEDEMA [None]
  - OLIGURIA [None]
  - PYREXIA [None]
  - RECTAL HAEMORRHAGE [None]
  - RENAL FAILURE ACUTE [None]
  - RENAL PAIN [None]
  - WEIGHT INCREASED [None]
